FAERS Safety Report 4596192-4 (Version None)
Quarter: 2005Q1

REPORT INFORMATION
  Report Type: 
  Country: None (occurrence: None)
  Receive Date: 20050225
  Receipt Date: 20050211
  Transmission Date: 20050727
  Serious: Yes (Death, Hospitalization)
  Sender: FDA-Public Use
  Company Number: CERD-10012

PATIENT
  Age: 68 Year
  Sex: Male
  Weight: 55 kg

DRUGS (1)
  1. CEREDASE [Suspect]
     Indication: GAUCHER'S DISEASE
     Dosage: 3200 UNITS Q2WKS IV
     Route: 042
     Dates: start: 19911001, end: 20041101

REACTIONS (38)
  - ABDOMINAL INFECTION [None]
  - ANASTOMOTIC LEAK [None]
  - ASCITES [None]
  - ASTHENIA [None]
  - BILE DUCT STONE [None]
  - BILIARY ANASTOMOSIS COMPLICATION [None]
  - BILOMA [None]
  - CIRRHOSIS ALCOHOLIC [None]
  - DIABETES MELLITUS INSULIN-DEPENDENT [None]
  - DRUG LEVEL INCREASED [None]
  - ELECTROLYTE IMBALANCE [None]
  - ENTEROBACTER INFECTION [None]
  - ENTEROCOCCAL INFECTION [None]
  - FEELING ABNORMAL [None]
  - GASTRIC PERFORATION [None]
  - HAEMATOCRIT DECREASED [None]
  - HAEMATURIA [None]
  - HEPATIC FAILURE [None]
  - HEPATIC NEOPLASM MALIGNANT [None]
  - HEPATITIS C [None]
  - HYPOTENSION [None]
  - HYPOXIA [None]
  - IMPLANT SITE EFFUSION [None]
  - LEUKOPENIA [None]
  - LIVER TRANSPLANT [None]
  - MALNUTRITION [None]
  - MENTAL STATUS CHANGES [None]
  - MULTI-ORGAN FAILURE [None]
  - OXYGEN SATURATION DECREASED [None]
  - PANCYTOPENIA [None]
  - PELVI-URETERIC OBSTRUCTION [None]
  - PERITONITIS [None]
  - PERITONITIS BACTERIAL [None]
  - POST PROCEDURAL COMPLICATION [None]
  - PREALBUMIN DECREASED [None]
  - RENAL FAILURE ACUTE [None]
  - STAPHYLOCOCCAL INFECTION [None]
  - THROMBOCYTOPENIA [None]
